FAERS Safety Report 9477163 (Version 1)
Quarter: 2013Q3

REPORT INFORMATION
  Report Type: Not Available
  Country: US (occurrence: US)
  Receive Date: 20130826
  Receipt Date: 20130826
  Transmission Date: 20140515
  Serious: No
  Sender: FDA-Public Use
  Company Number: US-AMARIN PHARMA, INC.-2013AMR000017

PATIENT
  Age: 45 Year
  Sex: Male

DRUGS (2)
  1. VASCEPA [Suspect]
     Indication: BLOOD CHOLESTEROL INCREASED
     Dosage: 4 GRAMS, BID
     Route: 065
     Dates: start: 201304, end: 20130425
  2. MULTIPLE UNSPECIFIED MEDICATIONS [Concomitant]
     Indication: PRODUCT USED FOR UNKNOWN INDICATION

REACTIONS (1)
  - Dental discomfort [Recovering/Resolving]
